FAERS Safety Report 11523504 (Version 1)
Quarter: 2015Q3

REPORT INFORMATION
  Report Type: Spontaneous
  Country: US (occurrence: US)
  Receive Date: 20150918
  Receipt Date: 20150918
  Transmission Date: 20151125
  Serious: Yes (Other)
  Sender: FDA-Public Use
  Company Number: US-TAKEDA-TPA2011A07479

PATIENT

DRUGS (8)
  1. ACTOS [Suspect]
     Active Substance: PIOGLITAZONE HYDROCHLORIDE
     Dosage: 2 MG, UNK
     Route: 048
     Dates: start: 20051120
  2. AMARYL [Concomitant]
     Active Substance: GLIMEPIRIDE
     Dosage: 2 MG, UNK
     Dates: start: 20050225, end: 20051012
  3. ACTOS [Suspect]
     Active Substance: PIOGLITAZONE HYDROCHLORIDE
     Indication: TYPE 2 DIABETES MELLITUS
     Dosage: 15 MG, UNK
     Route: 048
     Dates: start: 20050823
  4. METFORMIN [Concomitant]
     Active Substance: METFORMIN HYDROCHLORIDE
     Dosage: 1000 MG, UNK
     Dates: start: 20000101, end: 20111010
  5. ACTOS [Suspect]
     Active Substance: PIOGLITAZONE HYDROCHLORIDE
     Dosage: 30 MG, UNK
     Route: 048
     Dates: start: 20071214
  6. AMARYL [Concomitant]
     Active Substance: GLIMEPIRIDE
     Dosage: 2MG AND 4 MG, UNK
     Dates: start: 20050504, end: 20100311
  7. JANUVIA [Concomitant]
     Active Substance: SITAGLIPTIN PHOSPHATE
     Dosage: 50 MG, UNK
     Dates: start: 201103, end: 201108
  8. AVANDIA [Concomitant]
     Active Substance: ROSIGLITAZONE MALEATE
     Dosage: 4 MG, UNK
     Dates: start: 20091021, end: 20100331

REACTIONS (12)
  - Decreased appetite [Unknown]
  - Back pain [Unknown]
  - Musculoskeletal discomfort [Unknown]
  - Abdominal discomfort [Unknown]
  - Dysuria [Unknown]
  - Abdominal pain [Unknown]
  - Pollakiuria [Unknown]
  - Weight decreased [Unknown]
  - Bladder transitional cell carcinoma [Unknown]
  - Micturition urgency [Unknown]
  - Gastrointestinal disorder [Unknown]
  - Blood urine present [Unknown]

NARRATIVE: CASE EVENT DATE: 20051019
